FAERS Safety Report 6536568-9 (Version None)
Quarter: 2010Q1

REPORT INFORMATION
  Report Type: 
  Country: None (occurrence: None)
  Receive Date: 20100113
  Receipt Date: 20100108
  Transmission Date: 20100710
  Serious: Yes (Hospitalization)
  Sender: FDA-Public Use
  Company Number: PHHO2008US13012

PATIENT
  Sex: Male

DRUGS (2)
  1. CERTICAN [Suspect]
     Indication: RENAL TRANSPLANT
     Dosage: 0.75 BID
     Route: 048
     Dates: start: 20080619
  2. CERTICAN [Suspect]
     Dosage: 2.5 MG/DAY
     Route: 048

REACTIONS (5)
  - ABDOMINAL HERNIA [None]
  - INCISIONAL HERNIA [None]
  - INCISIONAL HERNIA REPAIR [None]
  - POST PROCEDURAL DRAINAGE [None]
  - SEROMA [None]
